FAERS Safety Report 15563963 (Version 1)
Quarter: 2018Q4

REPORT INFORMATION
  Report Type: Spontaneous
  Country: US (occurrence: US)
  Receive Date: 20181030
  Receipt Date: 20181030
  Transmission Date: 20190205
  Serious: No
  Sender: FDA-Public Use
  Company Number: US-ASTRAZENECA-2018SF29301

PATIENT
  Sex: Male

DRUGS (1)
  1. BRILINTA [Suspect]
     Active Substance: TICAGRELOR
     Indication: STENT PLACEMENT
     Route: 048
     Dates: start: 201707, end: 20181001

REACTIONS (7)
  - Respiration abnormal [Unknown]
  - Cough [Unknown]
  - Pneumonia [Unknown]
  - Product use issue [Unknown]
  - Off label use [Unknown]
  - Product dose omission [Unknown]
  - Breathing-related sleep disorder [Unknown]
